FAERS Safety Report 6904550-5 (Version None)
Quarter: 2010Q3

REPORT INFORMATION
  Report Type: 
  Country: None (occurrence: None)
  Receive Date: 20100804
  Receipt Date: 20090608
  Transmission Date: 20110219
  Serious: No
  Sender: FDA-Public Use
  Company Number: US-PFIZER INC-2009193920

PATIENT
  Sex: Female
  Weight: 104.31 kg

DRUGS (6)
  1. LYRICA [Suspect]
     Indication: PAIN
     Dosage: 75 MG, 1X/DAY
     Dates: start: 20090301
  2. PRILOSEC [Concomitant]
     Dosage: UNK
  3. ATENOLOL [Concomitant]
     Dosage: UNK
  4. PROZAC [Concomitant]
     Dosage: UNK
  5. METHADONE [Concomitant]
     Dosage: UNK
  6. INSULIN [Concomitant]
     Dosage: UNK

REACTIONS (5)
  - AMNESIA [None]
  - GAIT DISTURBANCE [None]
  - SOMNOLENCE [None]
  - SWELLING FACE [None]
  - VOMITING [None]
